FAERS Safety Report 5705858-1 (Version None)
Quarter: 2008Q2

REPORT INFORMATION
  Report Type: 
  Country: None (occurrence: None)
  Receive Date: 20080415
  Receipt Date: 20080408
  Transmission Date: 20081010
  Serious: Yes (Hospitalization)
  Sender: FDA-Public Use
  Company Number: NL-MERCK-0802NLD00025

PATIENT
  Age: 56 Year
  Sex: Female

DRUGS (4)
  1. COZAAR [Suspect]
     Route: 048
     Dates: start: 20080101
  2. QUETIAPINE FUMARATE [Suspect]
     Indication: SCHIZOPHRENIA
     Route: 048
     Dates: start: 20080204, end: 20080204
  3. AMLODIPINE BESYLATE [Suspect]
     Route: 048
     Dates: start: 20080101
  4. POTASSIUM CHLORIDE [Concomitant]
     Route: 048
     Dates: start: 20080101

REACTIONS (2)
  - DRUG INTERACTION [None]
  - HYPOTENSION [None]
